FAERS Safety Report 6099153-1 (Version None)
Quarter: 2009Q1

REPORT INFORMATION
  Report Type: 
  Country: None (occurrence: None)
  Receive Date: 20090302
  Receipt Date: 20090226
  Transmission Date: 20090719
  Serious: Yes (Life-Threatening)
  Sender: FDA-Public Use
  Company Number: FR-B.I. PHARMACEUTICALS,INC./RIDGEFIELD-2009-FF-00011FF

PATIENT
  Sex: Male
  Weight: 73.4 kg

DRUGS (2)
  1. MICARDIS [Suspect]
     Dosage: 40MG
     Route: 048
  2. LIPANTHYL MICRONISE [Concomitant]
     Dosage: 20NR
     Route: 048

REACTIONS (3)
  - CARDIAC ARREST [None]
  - HYPOKALAEMIA [None]
  - VENTRICULAR FIBRILLATION [None]
